FAERS Safety Report 15722205 (Version 1)
Quarter: 2018Q4

REPORT INFORMATION
  Report Type: Spontaneous
  Country: US (occurrence: US)
  Receive Date: 20181213
  Receipt Date: 20181213
  Transmission Date: 20190205
  Serious: Yes (Death)
  Sender: FDA-Public Use
  Company Number: None

PATIENT
  Age: 69 Year
  Sex: Female
  Weight: 80.6 kg

DRUGS (1)
  1. CIPROFLOXACIN. [Suspect]
     Active Substance: CIPROFLOXACIN
     Route: 048

REACTIONS (7)
  - Hyperhidrosis [None]
  - Tachypnoea [None]
  - Abdominal pain [None]
  - Myocardial infarction [None]
  - Diabetic ketoacidosis [None]
  - Haemolysis [None]
  - Mental status changes [None]

NARRATIVE: CASE EVENT DATE: 20181129
